FAERS Safety Report 18591417 (Version 2)
Quarter: 2021Q4

REPORT INFORMATION
  Report Type: Spontaneous
  Country: HN (occurrence: HN)
  Receive Date: 20201208
  Receipt Date: 20211111
  Transmission Date: 20220303
  Serious: Yes (Other)
  Sender: FDA-Public Use
  Company Number: HN-PFIZER INC-2020479429

PATIENT
  Age: 84 Year
  Sex: Male

DRUGS (2)
  1. LIPITOR [Suspect]
     Active Substance: ATORVASTATIN CALCIUM
     Dosage: 1 DF, DAILY (20 MG)
     Route: 048
     Dates: start: 2016, end: 202006
  2. LIPITOR [Suspect]
     Active Substance: ATORVASTATIN CALCIUM
     Dosage: 1 DF, DAILY (10 MG)
     Route: 048
     Dates: start: 202006

REACTIONS (3)
  - Parkinson^s disease [Unknown]
  - Aphasia [Unknown]
  - Asthenia [Unknown]
